FAERS Safety Report 4767639-5 (Version None)
Quarter: 2005Q3

REPORT INFORMATION
  Report Type: 
  Country: None (occurrence: None)
  Receive Date: 20050909
  Receipt Date: 20050831
  Transmission Date: 20060218
  Serious: Yes (Other)
  Sender: FDA-Public Use
  Company Number: 05UK 0180

PATIENT
  Age: 83 Year
  Sex: Female

DRUGS (2)
  1. AGGRASTAT [Suspect]
     Indication: CHEST PAIN
     Dosage: AS PER LABELING
     Dates: start: 20050830, end: 20050831
  2. HEAPRIN (HEPARIN) [Concomitant]

REACTIONS (7)
  - BLOOD FIBRINOGEN ABNORMAL [None]
  - DISSEMINATED INTRAVASCULAR COAGULATION [None]
  - ELECTROCARDIOGRAM CHANGE [None]
  - HAEMORRHAGE [None]
  - INFUSION SITE BRUISING [None]
  - INTERNATIONAL NORMALISED RATIO INCREASED [None]
  - TROPONIN INCREASED [None]
